FAERS Safety Report 5985888-5 (Version None)
Quarter: 2008Q4

REPORT INFORMATION
  Report Type: 
  Country: None (occurrence: None)
  Receive Date: 20081203
  Receipt Date: 20081117
  Transmission Date: 20090506
  Serious: Yes (Hospitalization)
  Sender: FDA-Public Use
  Company Number: 8039634

PATIENT
  Age: 61 Year
  Sex: Female
  Weight: 113.6 kg

DRUGS (13)
  1. CIMZIA [Suspect]
     Indication: CROHN'S DISEASE
     Dosage: 400 MG/M SC
     Route: 058
     Dates: start: 20080716
  2. LISINOPRIL AND HYDROCHLOROTHIAZIDE [Concomitant]
  3. PROTONIX  /01263201, 40 MG [Concomitant]
  4. CYMBALTA [Concomitant]
  5. XANAX [Concomitant]
  6. DILAUDID /00080902/, 2 MG [Concomitant]
  7. FENTANYL, 25 MG [Concomitant]
  8. AMBIEN [Concomitant]
  9. ESTRADERM, 0.05 MCG [Concomitant]
  10. VITAMIN B-12 [Concomitant]
  11. BENADRYL [Concomitant]
  12. ALBUTEROL [Concomitant]
  13. ACIDOPHILUS [Concomitant]

REACTIONS (6)
  - ABDOMINAL PAIN [None]
  - CHROMATURIA [None]
  - DEHYDRATION [None]
  - DIARRHOEA INFECTIOUS [None]
  - HEADACHE [None]
  - VOMITING [None]
